FAERS Safety Report 14220487 (Version 1)
Quarter: 2017Q4

REPORT INFORMATION
  Report Type: Spontaneous
  Country: DE (occurrence: DE)
  Receive Date: 20171124
  Receipt Date: 20171124
  Transmission Date: 20180321
  Serious: Yes (Other)
  Sender: FDA-Public Use
  Company Number: PHHY2017DE172620

PATIENT
  Age: 77 Year
  Sex: Female

DRUGS (1)
  1. BUDESONIDE. [Suspect]
     Active Substance: BUDESONIDE
     Indication: CHRONIC OBSTRUCTIVE PULMONARY DISEASE
     Route: 065

REACTIONS (7)
  - Secretion discharge [Unknown]
  - Sepsis [Unknown]
  - Necrosis [Unknown]
  - Oesophageal candidiasis [Recovered/Resolved]
  - Haemodynamic instability [Unknown]
  - Oesophageal ulcer [Unknown]
  - Atrial fibrillation [Unknown]
